FAERS Safety Report 6459654-0 (Version None)
Quarter: 2009Q4

REPORT INFORMATION
  Report Type: 
  Country: None (occurrence: None)
  Receive Date: 20091127
  Receipt Date: 20091123
  Transmission Date: 20100525
  Serious: Yes (Life-Threatening, Hospitalization)
  Sender: FDA-Public Use
  Company Number: US-MILLENNIUM PHARMACEUTICALS, INC.-2009-04860

PATIENT

DRUGS (11)
  1. VELCADE [Suspect]
     Indication: MULTIPLE MYELOMA
     Dosage: UNK, UNK
  2. THALOMID [Suspect]
     Indication: MULTIPLE MYELOMA
     Dosage: 200 MG, UNK
     Route: 048
     Dates: start: 20080801, end: 20081101
  3. DEXAMETHASONE TAB [Suspect]
     Indication: MULTIPLE MYELOMA
     Dosage: 40 MG, UNK
     Route: 040
     Dates: start: 20081101, end: 20081201
  4. EFFEXOR [Concomitant]
     Indication: DRUG USE FOR UNKNOWN INDICATION
     Dosage: 150 MG, UNK
  5. OMEPRAZOLE [Concomitant]
     Indication: DRUG USE FOR UNKNOWN INDICATION
     Dosage: 20 MG, UNK
  6. COLACE [Concomitant]
     Indication: DRUG USE FOR UNKNOWN INDICATION
  7. COMPAZINE [Concomitant]
     Indication: DRUG USE FOR UNKNOWN INDICATION
  8. PERCOCET [Concomitant]
     Indication: BREAKTHROUGH PAIN
  9. IMODIUM [Concomitant]
     Indication: DRUG USE FOR UNKNOWN INDICATION
  10. LORAZEPAM [Concomitant]
     Indication: DRUG USE FOR UNKNOWN INDICATION
  11. DIFLUCAN [Concomitant]
     Indication: DRUG USE FOR UNKNOWN INDICATION

REACTIONS (14)
  - BONE MARROW FAILURE [None]
  - CUSHINGOID [None]
  - DISEASE PROGRESSION [None]
  - FATIGUE [None]
  - HYPERCALCAEMIA OF MALIGNANCY [None]
  - HYPERGLYCAEMIA [None]
  - HYPERVISCOSITY SYNDROME [None]
  - HYPONATRAEMIA [None]
  - MULTIPLE MYELOMA [None]
  - NAUSEA [None]
  - NO THERAPEUTIC RESPONSE [None]
  - PLASMAPHERESIS [None]
  - RESPIRATORY ALKALOSIS [None]
  - VOMITING [None]
